FAERS Safety Report 14623936 (Version 2)
Quarter: 2018Q1

REPORT INFORMATION
  Report Type: Spontaneous
  Country: US (occurrence: US)
  Receive Date: 20180312
  Receipt Date: 20180314
  Transmission Date: 20180509
  Serious: No
  Sender: FDA-Public Use
  Company Number: US-AMGEN-USASP2018031791

PATIENT
  Age: 45 Year
  Sex: Male

DRUGS (1)
  1. ENBREL [Suspect]
     Active Substance: ETANERCEPT
     Indication: RHEUMATOID ARTHRITIS
     Dosage: 50 MG, QWK
     Route: 065
     Dates: start: 2018

REACTIONS (5)
  - Underdose [Unknown]
  - Injection site swelling [Unknown]
  - Pain [Unknown]
  - Accidental exposure to product [Unknown]
  - Injection site ulcer [Unknown]

NARRATIVE: CASE EVENT DATE: 2018
